FAERS Safety Report 19145583 (Version 1)
Quarter: 2021Q2

REPORT INFORMATION
  Report Type: Spontaneous
  Country: US (occurrence: US)
  Receive Date: 20210416
  Receipt Date: 20210416
  Transmission Date: 20210717
  Serious: No
  Sender: FDA-Public Use
  Company Number: None

PATIENT
  Age: 62 Year
  Sex: Male

DRUGS (1)
  1. REVLIMID [Suspect]
     Active Substance: LENALIDOMIDE
     Indication: PLASMA CELL MYELOMA
     Route: 048
     Dates: start: 20201007, end: 20210416

REACTIONS (6)
  - Suicidal ideation [None]
  - Therapy cessation [None]
  - Drug intolerance [None]
  - Hypoaesthesia [None]
  - Diarrhoea [None]
  - Paraesthesia [None]

NARRATIVE: CASE EVENT DATE: 20210415
